FAERS Safety Report 6992039-7 (Version None)
Quarter: 2010Q3

REPORT INFORMATION
  Report Type: 
  Country: None (occurrence: None)
  Receive Date: 20100917
  Receipt Date: 20100907
  Transmission Date: 20110219
  Serious: Yes (Other)
  Sender: FDA-Public Use
  Company Number: SE-PFIZER INC-2010094648

PATIENT
  Age: 70 Year
  Sex: Female

DRUGS (3)
  1. PREDNISOLON [Suspect]
     Indication: DIPLOPIA
     Dosage: 40 MG, DAILY
     Dates: start: 20091201
  2. PREDNISOLON [Suspect]
     Dosage: 30 MG, DAILY
  3. PREDNISOLON [Suspect]
     Dosage: 20 MG,DAILY

REACTIONS (4)
  - FATIGUE [None]
  - FEELING ABNORMAL [None]
  - JOINT STIFFNESS [None]
  - MUSCULAR WEAKNESS [None]
